FAERS Safety Report 6682033-8 (Version None)
Quarter: 2010Q2

REPORT INFORMATION
  Report Type: 
  Country: None (occurrence: None)
  Receive Date: 20100414
  Receipt Date: 20100414
  Transmission Date: 20101027
  Serious: No
  Sender: FDA-Public Use
  Company Number: None

PATIENT
  Age: 73 Year
  Sex: Male
  Weight: 88.4514 kg

DRUGS (1)
  1. ACTOS [Suspect]
     Indication: TYPE 2 DIABETES MELLITUS
     Dosage: 1 DAILY PO
     Route: 048
     Dates: start: 20091219, end: 20100405

REACTIONS (5)
  - ARTHRALGIA [None]
  - FATIGUE [None]
  - QUALITY OF LIFE DECREASED [None]
  - TOOTHACHE [None]
  - WEIGHT INCREASED [None]
